FAERS Safety Report 7230939-3 (Version None)
Quarter: 2011Q1

REPORT INFORMATION
  Report Type: 
  Country: None (occurrence: None)
  Receive Date: 20110118
  Receipt Date: 20110106
  Transmission Date: 20110831
  Serious: Yes (Hospitalization, Other)
  Sender: FDA-Public Use
  Company Number: US-ROCHE-731336

PATIENT
  Sex: Male
  Weight: 99.8 kg

DRUGS (1)
  1. ACCUTANE [Suspect]
     Indication: ACNE
     Route: 065
     Dates: start: 19860601, end: 19861201

REACTIONS (12)
  - COLITIS ULCERATIVE [None]
  - INTESTINAL OBSTRUCTION [None]
  - FRACTURE [None]
  - BRONCHITIS [None]
  - HAEMORRHOIDS [None]
  - ANAEMIA [None]
  - GASTROINTESTINAL INJURY [None]
  - NECK INJURY [None]
  - GASTRIC HAEMORRHAGE [None]
  - BACK PAIN [None]
  - INFLAMMATORY BOWEL DISEASE [None]
  - HIATUS HERNIA [None]
